FAERS Safety Report 6063384-7 (Version None)
Quarter: 2009Q1

REPORT INFORMATION
  Report Type: 
  Country: None (occurrence: None)
  Receive Date: 20090203
  Receipt Date: 20081224
  Transmission Date: 20090719
  Serious: Yes (Life-Threatening, Hospitalization)
  Sender: FDA-Public Use
  Company Number: US-PFIZER INC-2008153196

PATIENT
  Sex: Female
  Weight: 52 kg

DRUGS (5)
  1. SILDENAFIL CITRATE [Suspect]
     Indication: PULMONARY HYPERTENSION
     Dosage: 40 MG, 3X/DAY
     Route: 048
     Dates: start: 20080101
  2. AMLODIPINE BESILATE [Concomitant]
     Dosage: 10 MG, 1X/DAY
     Route: 048
  3. FOLIC ACID [Concomitant]
     Dosage: 1 MG, 1X/DAY
     Route: 048
  4. TYLENOL [Concomitant]
     Dosage: 650 MG, AS NEEDED
     Route: 048
  5. TRAVOPROST [Suspect]
     Dosage: 1 DROP AT BEDTIME OU
     Route: 047

REACTIONS (1)
  - SUBARACHNOID HAEMORRHAGE [None]
